FAERS Safety Report 18059307 (Version 1)
Quarter: 2020Q3

REPORT INFORMATION
  Report Type: Spontaneous
  Country: US (occurrence: US)
  Receive Date: 20200723
  Receipt Date: 20200723
  Transmission Date: 20201103
  Serious: Yes (Other)
  Sender: FDA-Public Use
  Company Number: US-BAYER-2020-144056

PATIENT
  Age: 84 Year
  Sex: Male

DRUGS (2)
  1. CLOPIDOGREL [Interacting]
     Active Substance: CLOPIDOGREL BISULFATE
     Indication: IMPLANTABLE DEFIBRILLATOR INSERTION
  2. ACETYLSALICYLIC ACID [Suspect]
     Active Substance: ASPIRIN
     Indication: IMPLANTABLE DEFIBRILLATOR INSERTION

REACTIONS (4)
  - Labelled drug-drug interaction medication error [None]
  - Haemoptysis [None]
  - Vascular pseudoaneurysm [None]
  - Blood loss anaemia [None]
